FAERS Safety Report 6634071-9 (Version None)
Quarter: 2010Q1

REPORT INFORMATION
  Report Type: 
  Country: None (occurrence: None)
  Receive Date: 20100310
  Receipt Date: 20100303
  Transmission Date: 20100710
  Serious: Yes (Other)
  Sender: FDA-Public Use
  Company Number: 2010SP013300

PATIENT
  Age: 70 Year
  Sex: Female

DRUGS (7)
  1. REBETOL [Suspect]
     Indication: HEPATITIS C
     Dosage: 600 MG; QD; PO
     Route: 048
     Dates: start: 20100120, end: 20100206
  2. FERON (INTERFERON) [Suspect]
     Indication: HEPATITIS C
     Dosage: 3 MIU; BID; INDRP, 6 MIU; QD; INDRP
     Route: 041
     Dates: start: 20100120, end: 20100204
  3. FERON (INTERFERON) [Suspect]
     Indication: HEPATITIS C
     Dosage: 3 MIU; BID; INDRP, 6 MIU; QD; INDRP
     Route: 041
     Dates: start: 20100205, end: 20100206
  4. VOLTAREN [Concomitant]
  5. TEPRENONE [Concomitant]
  6. RANITAC [Concomitant]
  7. AMLODIPINE [Concomitant]

REACTIONS (2)
  - BLOOD CREATININE INCREASED [None]
  - HAEMOLYTIC ANAEMIA [None]
